FAERS Safety Report 9056492 (Version 2)
Quarter: 2013Q1

REPORT INFORMATION
  Report Type: Spontaneous
  Country: FR (occurrence: FR)
  Receive Date: 20130204
  Receipt Date: 20130208
  Transmission Date: 20140127
  Serious: Yes (Hospitalization)
  Sender: FDA-Public Use
  Company Number: FR-PFIZER INC-2013025340

PATIENT
  Age: 51 Year
  Sex: Male

DRUGS (14)
  1. TRIFLUCAN [Suspect]
     Indication: OESOPHAGEAL CANDIDIASIS
     Dosage: UNK
     Route: 048
     Dates: start: 201210, end: 20121031
  2. COUMADINE [Interacting]
     Indication: NEPHROTIC SYNDROME
     Dosage: UNK
     Route: 048
     Dates: start: 201210, end: 20121031
  3. CORTANCYL [Interacting]
     Indication: OESOPHAGEAL CANDIDIASIS
     Dosage: 1 MG/KG, 1X/DAY
     Route: 048
     Dates: start: 201210
  4. AMLOR [Concomitant]
     Dosage: 5 MG, 1X/DAY IN THE EVENING
  5. ESOMEPRAZOLE [Concomitant]
     Dosage: 40 MG, 1X/DAY IN THE EVENING
  6. FOLIC ACID [Concomitant]
     Dosage: 5 MG, 2X/DAY IN THE MORNING AND AT NOON
  7. OXAZEPAM [Concomitant]
     Dosage: 25 MG, 1X/DAY IN THE EVENING
  8. PIPAMPERONE [Concomitant]
     Dosage: 40 MG, 2X/DAY IN THE MORNING AND IN THE EVENING
  9. PREDNISOLONE [Concomitant]
     Dosage: 70 MG, 1X/DAY IN THE MORNING
  10. TAMSULOSIN [Concomitant]
     Dosage: 0.4 MG, 1X/DAY IN THE EVENING
  11. VITAMIN B1 AND B6 [Concomitant]
     Dosage: UNK
  12. ARANESP [Concomitant]
     Dosage: 50 UG, WEEKLY
  13. SALBUTAMOL [Concomitant]
  14. ATROVENT [Concomitant]
     Dosage: UNK

REACTIONS (3)
  - Drug interaction [Not Recovered/Not Resolved]
  - Renal failure acute [Not Recovered/Not Resolved]
  - International normalised ratio increased [Recovering/Resolving]
